FAERS Safety Report 12810028 (Version 5)
Quarter: 2016Q4

REPORT INFORMATION
  Report Type: Spontaneous
  Country: IT (occurrence: IT)
  Receive Date: 20161005
  Receipt Date: 20161019
  Transmission Date: 20170207
  Serious: Yes (Other)
  Sender: FDA-Public Use
  Company Number: IT-ROCHE-1838508

PATIENT
  Age: 58 Year
  Sex: Female
  Weight: 60 kg

DRUGS (8)
  1. OXALIPLATIN. [Suspect]
     Active Substance: OXALIPLATIN
     Indication: ADENOCARCINOMA PANCREAS
     Route: 042
     Dates: start: 20160905, end: 20160926
  2. PRITOR PLUS [Concomitant]
     Active Substance: TELMISARTAN
  3. CLEXANE [Concomitant]
     Active Substance: ENOXAPARIN SODIUM
  4. ATENOLOL. [Concomitant]
     Active Substance: ATENOLOL
  5. INSULIN [Concomitant]
     Active Substance: INSULIN NOS
  6. CREON [Concomitant]
     Active Substance: PANCRELIPASE AMYLASE\PANCRELIPASE LIPASE\PANCRELIPASE PROTEASE
  7. OMEPRAZOLE. [Concomitant]
     Active Substance: OMEPRAZOLE
  8. CAPECITABINE. [Suspect]
     Active Substance: CAPECITABINE
     Indication: ADENOCARCINOMA PANCREAS
     Dosage: THERAPY FROM 05/SEP/2016 TO 26/SEP/2016
     Route: 048
     Dates: start: 20160905

REACTIONS (2)
  - Hyperglycaemia [Recovering/Resolving]
  - Hypertensive crisis [Recovering/Resolving]

NARRATIVE: CASE EVENT DATE: 20160906
